FAERS Safety Report 10009816 (Version 1)
Quarter: 2014Q1

REPORT INFORMATION
  Report Type: Spontaneous
  Country: US (occurrence: US)
  Receive Date: 20140312
  Receipt Date: 20140312
  Transmission Date: 20141002
  Serious: No
  Sender: FDA-Public Use
  Company Number: US-INCYTE CORPORATION-2013IN000286

PATIENT
  Age: 55 Year
  Sex: Male

DRUGS (3)
  1. JAKAFI [Suspect]
     Indication: MYELOFIBROSIS
     Dosage: 20 MG, BID
     Route: 048
     Dates: start: 201301
  2. ANTIHYPERTENSIVES [Concomitant]
  3. CENTRUM SILVER [Concomitant]

REACTIONS (3)
  - Blood pressure increased [Unknown]
  - Haemoglobin decreased [Recovered/Resolved]
  - Weight increased [Unknown]
